FAERS Safety Report 6042415-4 (Version None)
Quarter: 2009Q1

REPORT INFORMATION
  Report Type: 
  Country: None (occurrence: None)
  Receive Date: 20090116
  Receipt Date: 20090116
  Transmission Date: 20090719
  Serious: Yes (Other)
  Sender: FDA-Public Use
  Company Number: US-ABBOTT-09P-163-0496648-00

PATIENT
  Sex: Male
  Weight: 112.59 kg

DRUGS (12)
  1. HUMIRA [Suspect]
     Indication: PSORIATIC ARTHROPATHY
     Dosage: PEN 1 IN 2 WEEKS
     Route: 058
     Dates: end: 20081201
  2. HUMIRA [Suspect]
     Route: 058
  3. TOPICAL CREAMS [Concomitant]
     Indication: PSORIATIC ARTHROPATHY
  4. HYTRIN [Concomitant]
     Indication: PROSTATOMEGALY
  5. FLOMAX [Concomitant]
     Indication: PROSTATOMEGALY
  6. FOLIC ACID [Concomitant]
     Indication: PSORIATIC ARTHROPATHY
  7. METHOTREXATE [Concomitant]
     Indication: PSORIATIC ARTHROPATHY
     Route: 048
  8. ACTONEL [Concomitant]
     Indication: RESORPTION BONE INCREASED
  9. AVODART [Concomitant]
     Indication: PROSTATOMEGALY
  10. VIAGRA [Concomitant]
     Indication: ERECTILE DYSFUNCTION
  11. CALTRATE [Concomitant]
     Indication: ROUTINE HEALTH MAINTENANCE
  12. CENTRUM [Concomitant]
     Indication: ROUTINE HEALTH MAINTENANCE

REACTIONS (3)
  - HODGKIN'S DISEASE [None]
  - LYMPHADENOPATHY [None]
  - NASOPHARYNGITIS [None]
